FAERS Safety Report 11178333 (Version 1)
Quarter: 2015Q2

REPORT INFORMATION
  Report Type: Spontaneous
  Country: US (occurrence: US)
  Receive Date: 20150610
  Receipt Date: 20150610
  Transmission Date: 20150821
  Serious: No
  Sender: FDA-Public Use
  Company Number: US-GLAXOSMITHKLINE-US2015077239

PATIENT
  Age: 61 Year
  Sex: Female

DRUGS (2)
  1. TARGET NICOTINE [Suspect]
     Active Substance: NICOTINE
     Indication: SMOKING CESSATION THERAPY
     Dosage: 21 MG, UNK
     Dates: start: 20150604, end: 20150604
  2. NICOTINE UNKNOWN BRAND TRANSDERMAL PATCH [Suspect]
     Active Substance: NICOTINE
     Indication: PRODUCT USED FOR UNKNOWN INDICATION
     Dosage: UNK

REACTIONS (4)
  - Skin warm [Recovered/Resolved]
  - Application site pruritus [Unknown]
  - Application site pain [Unknown]
  - Application site urticaria [Recovered/Resolved]

NARRATIVE: CASE EVENT DATE: 20150604
